FAERS Safety Report 10065315 (Version 1)
Quarter: 2014Q2

REPORT INFORMATION
  Report Type: Spontaneous
  Country: US (occurrence: US)
  Receive Date: 20140408
  Receipt Date: 20140408
  Transmission Date: 20141212
  Serious: Yes (Hospitalization)
  Sender: FDA-Public Use
  Company Number: US-MYLANLABS-2014S1007548

PATIENT
  Sex: Female

DRUGS (5)
  1. CLONAZEPAM TABLETS, USP [Suspect]
     Indication: ANXIETY
     Route: 048
     Dates: end: 201403
  2. NEXIUM [Concomitant]
     Indication: GASTROOESOPHAGEAL REFLUX DISEASE
  3. CALCIUM [Concomitant]
  4. CENTRUM [Concomitant]
  5. TYLENOL [Concomitant]
     Indication: PAIN

REACTIONS (9)
  - Suicidal ideation [Recovered/Resolved]
  - Withdrawal syndrome [Recovering/Resolving]
  - Memory impairment [Recovering/Resolving]
  - Confusional state [Recovering/Resolving]
  - Myalgia [Recovering/Resolving]
  - Muscle twitching [Not Recovered/Not Resolved]
  - Headache [Not Recovered/Not Resolved]
  - Blood pressure increased [Not Recovered/Not Resolved]
  - Heart rate increased [Recovering/Resolving]
